FAERS Safety Report 14626887 (Version 3)
Quarter: 2018Q1

REPORT INFORMATION
  Report Type: Spontaneous
  Country: AU (occurrence: AU)
  Receive Date: 20180312
  Receipt Date: 20180327
  Transmission Date: 20180509
  Serious: Yes (Hospitalization, Other)
  Sender: FDA-Public Use
  Company Number: AU-SA-2018SA069404

PATIENT
  Age: 43 Year
  Sex: Male

DRUGS (1)
  1. LEMTRADA [Suspect]
     Active Substance: ALEMTUZUMAB
     Route: 041
     Dates: start: 2016

REACTIONS (12)
  - Nephritis [Unknown]
  - Anti-glomerular basement membrane antibody [Recovered/Resolved]
  - Proteinuria [Unknown]
  - Glomerulonephritis minimal lesion [Unknown]
  - Red blood cells urine positive [Unknown]
  - Albuminuria [Unknown]
  - T-lymphocyte count decreased [Unknown]
  - CD4 lymphocyte percentage decreased [Unknown]
  - CD8 lymphocyte percentage decreased [Unknown]
  - Goodpasture^s syndrome [Unknown]
  - Haematuria [Unknown]
  - Lymphopenia [Unknown]

NARRATIVE: CASE EVENT DATE: 20180228
